FAERS Safety Report 12693094 (Version 1)
Quarter: 2016Q3

REPORT INFORMATION
  Report Type: Spontaneous
  Country: AU (occurrence: AU)
  Receive Date: 20160829
  Receipt Date: 20160829
  Transmission Date: 20161109
  Serious: Yes (Other)
  Sender: FDA-Public Use
  Company Number: AU-MYLANLABS-2016M1035830

PATIENT

DRUGS (5)
  1. MAGMIN [Suspect]
     Active Substance: MAGNESIUM ASPARTATE
     Indication: PRODUCT USED FOR UNKNOWN INDICATION
  2. CHOLECALCIFEROL [Suspect]
     Active Substance: CHOLECALCIFEROL
     Indication: PRODUCT USED FOR UNKNOWN INDICATION
  3. VALPROIC ACID. [Suspect]
     Active Substance: VALPROIC ACID
     Indication: PRODUCT USED FOR UNKNOWN INDICATION
  4. PROPRANOLOL [Suspect]
     Active Substance: PROPRANOLOL\PROPRANOLOL HYDROCHLORIDE
     Indication: PRODUCT USED FOR UNKNOWN INDICATION
  5. CLOZAPINE. [Suspect]
     Active Substance: CLOZAPINE
     Indication: PRODUCT USED FOR UNKNOWN INDICATION

REACTIONS (13)
  - Blood creatine phosphokinase increased [Unknown]
  - Blood urea increased [Unknown]
  - Blood lactate dehydrogenase increased [Unknown]
  - Parkinsonism [Unknown]
  - Monocyte count increased [Unknown]
  - Blood phosphorus increased [Unknown]
  - Blood urea nitrogen/creatinine ratio increased [Unknown]
  - Antipsychotic drug level below therapeutic [Unknown]
  - Constipation [Unknown]
  - Nocturia [Unknown]
  - Blood glucose increased [Unknown]
  - Blood osmolarity increased [Unknown]
  - Blood creatinine decreased [Unknown]
